FAERS Safety Report 18724694 (Version 1)
Quarter: 2021Q1

REPORT INFORMATION
  Report Type: Spontaneous
  Country: US (occurrence: US)
  Receive Date: 20210109
  Receipt Date: 20210109
  Transmission Date: 20210419
  Serious: No
  Sender: FDA-Public Use
  Company Number: None

PATIENT
  Sex: Male

DRUGS (1)
  1. OMNITROPE [Suspect]
     Active Substance: SOMATROPIN
     Indication: HYPOPITUITARISM
     Dosage: ?          OTHER STRENGTH:10MG/1.5M;OTHER FREQUENCY:6 NIGHTS PER WEEK ;?
     Route: 058
     Dates: start: 20190522

REACTIONS (1)
  - Device mechanical issue [None]
